FAERS Safety Report 21989306 (Version 1)
Quarter: 2023Q1

REPORT INFORMATION
  Report Type: Spontaneous
  Country: US (occurrence: None)
  Receive Date: 20230212
  Receipt Date: 20230212
  Transmission Date: 20230418
  Serious: Yes (Disabling)
  Sender: FDA-Public Use
  Company Number: None

PATIENT
  Age: 64 Year
  Sex: Female
  Weight: 70.2 kg

DRUGS (16)
  1. BELSOMRA [Suspect]
     Active Substance: SUVOREXANT
     Indication: Insomnia
     Dosage: OTHER QUANTITY : 1 TABLET(S);?FREQUENCY : AT BEDTIME;?
     Route: 048
     Dates: start: 20230207, end: 20230208
  2. AMLODIPINE [Concomitant]
     Active Substance: AMLODIPINE BESYLATE
  3. GLIMEPIRIDE [Concomitant]
     Active Substance: GLIMEPIRIDE
  4. FENOFIBRATE [Concomitant]
     Active Substance: FENOFIBRATE
  5. ROSUVASTATIN [Concomitant]
     Active Substance: ROSUVASTATIN
  6. PANTOPRAZOLE [Concomitant]
     Active Substance: PANTOPRAZOLE
  7. ESTRADIOL [Concomitant]
     Active Substance: ESTRADIOL
  8. ALPRAZOLAM [Concomitant]
     Active Substance: ALPRAZOLAM
  9. GABAPENTIN [Concomitant]
     Active Substance: GABAPENTIN
  10. ROPINIROLE [Concomitant]
     Active Substance: ROPINIROLE
  11. PRAMIPEXOLE [Concomitant]
     Active Substance: PRAMIPEXOLE
  12. VITAMIN D3 [Concomitant]
     Active Substance: CHOLECALCIFEROL
  13. VITAMIN B12 [Concomitant]
     Active Substance: CYANOCOBALAMIN
  14. MAGNESIUM [Concomitant]
     Active Substance: MAGNESIUM
  15. PROBIOTICS NOS [Concomitant]
     Active Substance: PROBIOTICS NOS
  16. DOCUSATE SODIUM\SENNOSIDES [Concomitant]
     Active Substance: DOCUSATE SODIUM\SENNOSIDES

REACTIONS (6)
  - Headache [None]
  - Nausea [None]
  - Hallucination [None]
  - Nightmare [None]
  - Muscular weakness [None]
  - Hypoaesthesia [None]

NARRATIVE: CASE EVENT DATE: 20230208
